FAERS Safety Report 10285496 (Version 1)
Quarter: 2014Q3

REPORT INFORMATION
  Report Type: Spontaneous
  Country: US (occurrence: US)
  Receive Date: 20140709
  Receipt Date: 20140709
  Transmission Date: 20150326
  Serious: Yes (Other)
  Sender: FDA-Public Use
  Company Number: US-ROCHE-1428166

PATIENT
  Sex: Male

DRUGS (1)
  1. ERIVEDGE [Suspect]
     Active Substance: VISMODEGIB
     Indication: BASAL CELL CARCINOMA
     Route: 065

REACTIONS (9)
  - Vitamin D deficiency [Unknown]
  - Upper limb fracture [Unknown]
  - Weight decreased [Unknown]
  - Impaired healing [Unknown]
  - Basal cell carcinoma [Unknown]
  - Fall [Unknown]
  - Alopecia [Unknown]
  - Gastrointestinal disorder [Unknown]
  - Arthropathy [Unknown]
